FAERS Safety Report 9515338 (Version 1)
Quarter: 2013Q1

REPORT INFORMATION
  Report Type: Spontaneous
  Country: US (occurrence: None)
  Receive Date: 20130305
  Receipt Date: 20130305
  Transmission Date: 20140127
  Serious: Yes (Hospitalization, Other)
  Sender: FDA-Public Use
  Company Number: 163-21880-12103038

PATIENT
  Age: 75 Year
  Sex: Male

DRUGS (14)
  1. REVLIMID [Suspect]
     Indication: PLASMA CELL MYELOMA
     Dosage: 25 MG, 1 IN 1 D, PO
     Route: 048
     Dates: start: 20100505, end: 2011
  2. ASPIRIN (ACETYLSALICYLIC ACID) (TABLETS) [Concomitant]
  3. LASIX (FUROSEMIDE) (UNKNOWN) [Concomitant]
  4. ALTACE (RAMIPRIL) (UNKNOWN) [Concomitant]
  5. FLOMAX (TAMSULOSIN HYDROCHLORIDE) (UNKNOWN) [Concomitant]
  6. OYSTER SHELL CAPSULES (CALCIUM) (TABLETS) [Concomitant]
  7. POTASSIUM (POTASSIUM) (UNKNOWN) [Concomitant]
  8. ALLOPURINOL (ALLOPURINOL) (UNKNOWN) [Concomitant]
  9. CALCIUM +VIT D (CALCIUM D3 ^STADA^) (UNKNOWN) [Concomitant]
  10. DECADRON [Concomitant]
  11. ZOMETA (ZOLEDRONIC ACID) (UNKNOWN) [Concomitant]
  12. HCTZ (HYDROCHLOROTHIAZIDE) (UNKNOWN) [Concomitant]
  13. RAMIPRIL (RAMIPRIL) (TABLETS) [Concomitant]
  14. TAMSULOSIN (TAMSULOSIN) (UNKNOWN) [Concomitant]

REACTIONS (1)
  - Deep vein thrombosis [None]
